FAERS Safety Report 10178462 (Version 1)
Quarter: 2014Q2

REPORT INFORMATION
  Report Type: Spontaneous
  Country: PL (occurrence: None)
  Receive Date: 20140515
  Receipt Date: 20140515
  Transmission Date: 20141212
  Serious: Yes (Life-Threatening)
  Sender: FDA-Public Use
  Company Number: TPU2014-00111

PATIENT
  Sex: 0

DRUGS (2)
  1. LIGNOCAINE [Suspect]
     Indication: PRODUCT USED FOR UNKNOWN INDICATION
  2. ANTIINFLAMMATORY AGENTS [Suspect]
     Indication: PRODUCT USED FOR UNKNOWN INDICATION

REACTIONS (4)
  - Anaphylactic reaction [None]
  - Acute generalised exanthematous pustulosis [None]
  - Stevens-Johnson syndrome [None]
  - Toxic epidermal necrolysis [None]
